FAERS Safety Report 11176832 (Version 2)
Quarter: 2015Q2

REPORT INFORMATION
  Report Type: Report from Study
  Country: US (occurrence: US)
  Receive Date: 20150610
  Receipt Date: 20150613
  Transmission Date: 20150821
  Serious: Yes (Hospitalization)
  Sender: FDA-Public Use
  Company Number: US-BIOGENIDEC-2015BI055161

PATIENT
  Age: 52 Year
  Sex: Male

DRUGS (1)
  1. TYSABRI [Suspect]
     Active Substance: NATALIZUMAB
     Indication: MULTIPLE SCLEROSIS
     Route: 042
     Dates: start: 20120314

REACTIONS (5)
  - Hip fracture [Not Recovered/Not Resolved]
  - Muscular weakness [Not Recovered/Not Resolved]
  - Multiple sclerosis [Unknown]
  - Fall [Recovered/Resolved]
  - Drug dose omission [Unknown]

NARRATIVE: CASE EVENT DATE: 201504
